FAERS Safety Report 6924831-9 (Version None)
Quarter: 2010Q3

REPORT INFORMATION
  Report Type: 
  Country: None (occurrence: None)
  Receive Date: 20100816
  Receipt Date: 20100805
  Transmission Date: 20110219
  Serious: Yes (Death, Hospitalization)
  Sender: FDA-Public Use
  Company Number: US-ELI_LILLY_AND_COMPANY-US201007006720

PATIENT
  Sex: Male
  Weight: 73.469 kg

DRUGS (17)
  1. PEMETREXED [Suspect]
     Indication: NON-SMALL CELL LUNG CANCER STAGE IIIB
     Dosage: 500 MG/M2, OTHER
     Route: 042
     Dates: start: 20100329, end: 20100601
  2. PEMETREXED [Suspect]
     Dosage: 500 MG/M2, OTHER
     Route: 042
     Dates: start: 20100622
  3. CARBOPLATIN [Suspect]
     Indication: NON-SMALL CELL LUNG CANCER STAGE IIIB
     Dosage: 6 D/F, OTHER
     Route: 042
     Dates: start: 20100329, end: 20100601
  4. BEVACIZUMAB [Suspect]
     Indication: NON-SMALL CELL LUNG CANCER STAGE IIIB
     Dosage: 15 MG/KG, OTHER
     Route: 042
     Dates: start: 20100329, end: 20100601
  5. BEVACIZUMAB [Suspect]
     Dosage: 15 MG/KG, OTHER
     Route: 042
     Dates: start: 20100622
  6. ALPRAZOLAN [Concomitant]
     Indication: ANXIETY
     Dosage: 0.5 MG, UNK
     Dates: start: 20100317
  7. HYCODAN [Concomitant]
     Indication: COUGH
     Dates: start: 20100406
  8. HYDROCODONE BITARTRATE [Concomitant]
     Indication: PAIN
     Dosage: 7.5 MG, UNK
     Dates: start: 20100408
  9. ZOFRAN [Concomitant]
     Indication: GASTROOESOPHAGEAL REFLUX DISEASE
     Dosage: 8 MG, UNK
     Dates: start: 20100405
  10. WYTENS /01166101/ [Concomitant]
     Indication: HYPERTENSION
     Dosage: UNK, UNK
  11. SYNTHROID [Concomitant]
     Indication: THYROID DISORDER
     Dosage: 137 UG, UNK
  12. ALTACE [Concomitant]
     Indication: CORONARY ARTERY DISEASE
     Dosage: 10 MG, UNK
  13. ASPIRIN [Concomitant]
     Indication: PROPHYLAXIS
     Dosage: 81 MG, UNK
  14. ACIPHEX [Concomitant]
     Indication: GASTROOESOPHAGEAL REFLUX DISEASE
     Dosage: 20 MG, UNK
  15. COREG [Concomitant]
     Indication: CORONARY ARTERY DISEASE
     Dosage: 12.5 MG, UNK
  16. INVANZ [Concomitant]
     Indication: LOBAR PNEUMONIA
     Route: 042
  17. LEVAQUIN [Concomitant]
     Indication: LOBAR PNEUMONIA
     Dates: start: 20100701

REACTIONS (2)
  - LYMPHANGIOSIS CARCINOMATOSA [None]
  - RESPIRATORY FAILURE [None]
